FAERS Safety Report 6819048-2 (Version None)
Quarter: 2010Q3

REPORT INFORMATION
  Report Type: 
  Country: None (occurrence: None)
  Receive Date: 20100701
  Receipt Date: 20100511
  Transmission Date: 20110219
  Serious: Yes (Other)
  Sender: FDA-Public Use
  Company Number: 2010US001635

PATIENT

DRUGS (4)
  1. AMEVIVE [Suspect]
     Indication: PSORIASIS
     Dosage: IV NOS
     Route: 042
     Dates: start: 20091209, end: 20100422
  2. AMEVIVE [Suspect]
     Indication: PSORIASIS
     Dosage: IV NOS
     Route: 042
     Dates: start: 20100422, end: 20100422
  3. CLOBETASOL E (CLOBETASOL PROPIONATE) [Concomitant]
  4. VECTICAL (CALCITRIOL) OINTMENT [Concomitant]

REACTIONS (2)
  - CD4 LYMPHOCYTES DECREASED [None]
  - DERMATITIS EXFOLIATIVE [None]
